FAERS Safety Report 13754246 (Version 2)
Quarter: 2017Q3

REPORT INFORMATION
  Report Type: Report from Study
  Country: US (occurrence: US)
  Receive Date: 20170714
  Receipt Date: 20170921
  Transmission Date: 20171127
  Serious: Yes (Hospitalization, Other)
  Sender: FDA-Public Use
  Company Number: US-BIOGEN-2017BI00429998

PATIENT
  Age: 49 Year
  Sex: Female

DRUGS (1)
  1. TYSABRI [Suspect]
     Active Substance: NATALIZUMAB
     Indication: MULTIPLE SCLEROSIS
     Route: 065
     Dates: start: 20170511

REACTIONS (13)
  - Dizziness [Unknown]
  - Limb discomfort [Unknown]
  - Dyspnoea [Not Recovered/Not Resolved]
  - Cardiac flutter [Unknown]
  - Cardiomegaly [Not Recovered/Not Resolved]
  - Asthenia [Unknown]
  - Cardiac murmur [Unknown]
  - Syncope [Unknown]
  - Cardiac failure congestive [Not Recovered/Not Resolved]
  - Cardiac valve disease [Unknown]
  - Seizure like phenomena [Recovered/Resolved]
  - Headache [Not Recovered/Not Resolved]
  - Malaise [Unknown]

NARRATIVE: CASE EVENT DATE: 201706
